FAERS Safety Report 7068189-6 (Version None)
Quarter: 2010Q4

REPORT INFORMATION
  Report Type: 
  Country: None (occurrence: None)
  Receive Date: 20101027
  Receipt Date: 20101027
  Transmission Date: 20110411
  Serious: Yes (Disabling)
  Sender: FDA-Public Use
  Company Number: None

PATIENT
  Age: 51 Year
  Sex: Female
  Weight: 47.1741 kg

DRUGS (1)
  1. AVELOX [Suspect]
     Indication: SINUSITIS
     Dosage: 1 1X PO
     Route: 048
     Dates: start: 20101021, end: 20101023

REACTIONS (12)
  - ABDOMINAL PAIN [None]
  - ANXIETY [None]
  - APHASIA [None]
  - DYSGEUSIA [None]
  - HALLUCINATION [None]
  - INSOMNIA [None]
  - MUSCULOSKELETAL PAIN [None]
  - PAIN IN EXTREMITY [None]
  - PALLOR [None]
  - PALPITATIONS [None]
  - THINKING ABNORMAL [None]
  - YELLOW SKIN [None]
